FAERS Safety Report 7622219-9 (Version None)
Quarter: 2011Q3

REPORT INFORMATION
  Report Type: 
  Country: None (occurrence: None)
  Receive Date: 20110720
  Receipt Date: 20110526
  Transmission Date: 20111222
  Serious: Yes (Hospitalization)
  Sender: FDA-Public Use
  Company Number: US-BAYER-201038098NA

PATIENT
  Age: 41 Year
  Sex: Female
  Weight: 58.957 kg

DRUGS (20)
  1. NITROGLYCERIN [Concomitant]
  2. PROGRAF [Concomitant]
     Dosage: 2 MG, BID
  3. MYCOPHENOLATE [Concomitant]
  4. DROSPIRENONE AND ETHINYL ESTRADIOL [Suspect]
     Indication: ACNE
  5. PREMARIN [Concomitant]
  6. SIMVASTATIN [Concomitant]
  7. TOPROL-XL [Concomitant]
     Dosage: UNK
     Dates: start: 20080101
  8. ASPIRIN [Concomitant]
  9. NEXIUM [Concomitant]
     Dosage: UNK
     Route: 048
     Dates: end: 20090910
  10. YAZ [Suspect]
     Dosage: UNK
  11. YASMIN [Suspect]
     Dosage: UNK
     Dates: start: 20040101, end: 20090101
  12. RANITIDINE [Concomitant]
  13. VITAMINS NOS [Concomitant]
  14. TOPROL-XL [Concomitant]
     Dosage: UNK
     Dates: start: 20070401
  15. PREDNISONE [Concomitant]
     Dosage: 5 UNK, UNK
  16. MAGNESIUM [Concomitant]
     Dosage: 200 MG, TID
  17. FUROSEMIDE [Concomitant]
     Dosage: UNK UNK, PRN
  18. CALCITRIOL [Concomitant]
  19. CELLCEPT [Concomitant]
     Dosage: 750 MG, BID
  20. COZAAR [Concomitant]
     Dosage: UNK
     Dates: start: 20030901, end: 20090101

REACTIONS (6)
  - HEART RATE IRREGULAR [None]
  - CHEST PAIN [None]
  - HEART INJURY [None]
  - CORONARY ARTERY DISEASE [None]
  - PAIN [None]
  - DYSPNOEA [None]
